FAERS Safety Report 20060513 (Version 5)
Quarter: 2022Q1

REPORT INFORMATION
  Report Type: Report from Study
  Country: US (occurrence: US)
  Receive Date: 20211112
  Receipt Date: 20220311
  Transmission Date: 20220424
  Serious: No
  Sender: FDA-Public Use
  Company Number: US-NOVARTISTESTPH-NVSC2021US258683

PATIENT
  Age: 67 Year
  Sex: Female

DRUGS (1)
  1. ENTRESTO [Suspect]
     Active Substance: SACUBITRIL\VALSARTAN
     Indication: Product used for unknown indication
     Dosage: 1.5 DOSAGE FORM, BID
     Route: 065

REACTIONS (7)
  - Memory impairment [Unknown]
  - Arthritis [Unknown]
  - Pain [Unknown]
  - Decreased activity [Unknown]
  - Weight increased [Unknown]
  - Hypotension [Recovered/Resolved]
  - Wrong technique in product usage process [Unknown]
